FAERS Safety Report 5373528-8 (Version None)
Quarter: 2007Q2

REPORT INFORMATION
  Report Type: 
  Country: None (occurrence: None)
  Receive Date: 20070628
  Receipt Date: 20070619
  Transmission Date: 20071010
  Serious: Yes (Disabling)
  Sender: FDA-Public Use
  Company Number: B0456695A

PATIENT
  Age: 78 Year
  Sex: Male
  Weight: 51 kg

DRUGS (4)
  1. VENTOLIN [Suspect]
     Indication: ASTHMA
     Dosage: 1PUFF AS REQUIRED
     Route: 050
  2. SYMBICORT [Concomitant]
     Indication: ASTHMA
     Dosage: 200MCG PER DAY
     Route: 055
  3. OXYGEN [Concomitant]
     Indication: DRUG USE FOR UNKNOWN INDICATION
  4. PROPRANOLOL [Concomitant]
     Indication: PORTAL HYPERTENSION
     Dosage: 160MG PER DAY
     Route: 048

REACTIONS (5)
  - ASTHMATIC CRISIS [None]
  - DRUG ADMINISTRATION ERROR [None]
  - TREMOR [None]
  - UNEVALUABLE EVENT [None]
  - VOMITING [None]
